FAERS Safety Report 9727828 (Version 1)
Quarter: 2013Q4

REPORT INFORMATION
  Report Type: Spontaneous
  Country: US (occurrence: US)
  Receive Date: 20131204
  Receipt Date: 20131204
  Transmission Date: 20140711
  Serious: Yes (Hospitalization, Other)
  Sender: FDA-Public Use
  Company Number: US-AMGEN-USASP2013085053

PATIENT
  Age: 75 Year
  Sex: Male

DRUGS (2)
  1. ENBREL [Suspect]
     Indication: RHEUMATOID ARTHRITIS
     Dosage: 50 MG, QWK
     Route: 065
     Dates: start: 2009
  2. PREDNISONE [Concomitant]
     Dosage: 50 MG, UNK
     Route: 048

REACTIONS (6)
  - Abasia [Not Recovered/Not Resolved]
  - Walking aid user [Not Recovered/Not Resolved]
  - Cardiac failure congestive [Recovered/Resolved]
  - Asthenia [Recovered/Resolved]
  - Arthropathy [Not Recovered/Not Resolved]
  - Arthralgia [Not Recovered/Not Resolved]
